FAERS Safety Report 4351026-8 (Version None)
Quarter: 2004Q2

REPORT INFORMATION
  Report Type: 
  Country: None (occurrence: None)
  Receive Date: 20040428
  Receipt Date: 20030501
  Transmission Date: 20050107
  Serious: Yes (Other)
  Sender: FDA-Public Use
  Company Number: 337209

PATIENT
  Age: 61 Year
  Sex: Female

DRUGS (4)
  1. NAPROXEN [Suspect]
     Indication: DRUG USE FOR UNKNOWN INDICATION
  2. ALEVE [Suspect]
     Indication: PLANTAR FASCIITIS
     Dosage: 220 MG DAILY ORAL
     Route: 048
     Dates: start: 20030220, end: 20030301
  3. AVANDIA [Concomitant]
  4. ZESTRIL [Concomitant]

REACTIONS (1)
  - BLOOD URINE [None]
